FAERS Safety Report 12073045 (Version 1)
Quarter: 2016Q1

REPORT INFORMATION
  Report Type: Spontaneous
  Country: US (occurrence: None)
  Receive Date: 20160211
  Receipt Date: 20160211
  Transmission Date: 20160526
  Serious: Yes (Other)
  Sender: FDA-Public Use
  Company Number: None

PATIENT
  Age: 32 Year
  Sex: Female
  Weight: 68.04 kg

DRUGS (6)
  1. ARIPIPRAZOLE 15 MG APOTEX CORP [Suspect]
     Active Substance: ARIPIPRAZOLE
     Indication: PROPHYLAXIS
     Route: 048
     Dates: start: 20151101, end: 20151125
  2. TRAZODONE [Concomitant]
     Active Substance: TRAZODONE HYDROCHLORIDE
  3. CLONAZEPAM. [Concomitant]
     Active Substance: CLONAZEPAM
  4. ARIPIPRAZOLE 15 MG APOTEX CORP [Suspect]
     Active Substance: ARIPIPRAZOLE
     Indication: BIPOLAR DISORDER
     Route: 048
     Dates: start: 20151101, end: 20151125
  5. ARIPIPRAZOLE 15 MG APOTEX CORP [Suspect]
     Active Substance: ARIPIPRAZOLE
     Indication: BIPOLAR I DISORDER
     Route: 048
     Dates: start: 20151101, end: 20151125
  6. ESCITALOPRAM [Concomitant]
     Active Substance: ESCITALOPRAM OXALATE

REACTIONS (5)
  - Product quality issue [None]
  - Fear [None]
  - Depression [None]
  - Delusional perception [None]
  - Feeling abnormal [None]

NARRATIVE: CASE EVENT DATE: 20151123
